FAERS Safety Report 7230582-6 (Version None)
Quarter: 2011Q1

REPORT INFORMATION
  Report Type: 
  Country: None (occurrence: None)
  Receive Date: 20110118
  Receipt Date: 20110110
  Transmission Date: 20110831
  Serious: Yes (Other)
  Sender: FDA-Public Use
  Company Number: PHHY2010DE46732

PATIENT
  Sex: Female
  Weight: 59 kg

DRUGS (2)
  1. REVLIMID [Concomitant]
     Indication: CYTOGENETIC ABNORMALITY
  2. EXJADE [Suspect]
     Indication: MYELODYSPLASTIC SYNDROME
     Dosage: 1000 MG DAILY
     Route: 048
     Dates: start: 20080109, end: 20090903

REACTIONS (11)
  - OSTEOPOROTIC FRACTURE [None]
  - RENAL TUBULAR DISORDER [None]
  - BONE MARROW DISORDER [None]
  - BLOOD ALKALINE PHOSPHATASE INCREASED [None]
  - TRANSAMINASES INCREASED [None]
  - BONE DISORDER [None]
  - BLOOD PHOSPHORUS DECREASED [None]
  - ARTHRALGIA [None]
  - OSTEOPOROSIS [None]
  - BONE DENSITY DECREASED [None]
  - BLOOD CREATININE INCREASED [None]
